FAERS Safety Report 15494114 (Version 1)
Quarter: 2018Q4

REPORT INFORMATION
  Report Type: Spontaneous
  Country: US (occurrence: US)
  Receive Date: 20181005
  Receipt Date: 20181005
  Transmission Date: 20190205
  Serious: No
  Sender: FDA-Public Use
  Company Number: None

PATIENT
  Sex: Female

DRUGS (1)
  1. ACTEMRA [Suspect]
     Active Substance: TOCILIZUMAB
     Indication: TEMPORAL ARTERITIS
     Route: 058
     Dates: start: 201806

REACTIONS (7)
  - Asthenia [None]
  - Cough [None]
  - Dysgeusia [None]
  - Dry throat [None]
  - Diarrhoea [None]
  - Abdominal pain upper [None]
  - Fatigue [None]
